FAERS Safety Report 10755239 (Version 1)
Quarter: 2015Q1

REPORT INFORMATION
  Report Type: Spontaneous
  Country: FR (occurrence: FR)
  Receive Date: 20150202
  Receipt Date: 20150202
  Transmission Date: 20150721
  Serious: Yes (Death)
  Sender: FDA-Public Use
  Company Number: FR-PFIZER INC-2015038186

PATIENT
  Age: 64 Year
  Sex: Male

DRUGS (23)
  1. ISOPHANE INSULIN [Concomitant]
     Active Substance: INSULIN NOS
  2. LASILIX [Concomitant]
     Active Substance: FUROSEMIDE
  3. ENDOXAN [Suspect]
     Active Substance: CYCLOPHOSPHAMIDE
     Indication: NON-HODGKIN^S LYMPHOMA STAGE IV
     Dosage: UNK
     Route: 042
     Dates: start: 200807
  4. SOLUPRED [Concomitant]
     Active Substance: PREDNISOLONE
  5. BISOCE [Concomitant]
     Active Substance: BISOPROLOL
  6. INEXIUM /01479302/ [Concomitant]
     Active Substance: ESOMEPRAZOLE MAGNESIUM
  7. MABTHERA [Suspect]
     Active Substance: RITUXIMAB
     Indication: NON-HODGKIN^S LYMPHOMA STAGE IV
     Dosage: UNK
     Route: 042
     Dates: start: 200807, end: 200811
  8. METHOTREXATE (METHOTREXATE SODIUM) [Suspect]
     Active Substance: METHOTREXATE SODIUM
     Indication: NON-HODGKIN^S LYMPHOMA STAGE IV
     Dosage: UNK
     Route: 042
     Dates: start: 200811, end: 200812
  9. ALKERAN [Suspect]
     Active Substance: MELPHALAN
     Indication: NON-HODGKIN^S LYMPHOMA STAGE IV
     Dosage: 285 MG ON DAY 6
     Route: 042
     Dates: start: 20090302
  10. SKENAN [Concomitant]
     Active Substance: MORPHINE SULFATE
  11. TRAMADOL [Concomitant]
     Active Substance: TRAMADOL
  12. ELDISINE [Suspect]
     Active Substance: VINDESINE SULFATE
     Indication: NON-HODGKIN^S LYMPHOMA STAGE IV
     Dosage: UNK
     Route: 042
     Dates: start: 200807, end: 200811
  13. BLEOMYCINE BELLON [Suspect]
     Active Substance: BLEOMYCIN SULFATE
     Indication: NON-HODGKIN^S LYMPHOMA STAGE IV
     Dosage: 15 MG, UNK
     Route: 042
     Dates: start: 200807, end: 200811
  14. METFORMIN [Concomitant]
     Active Substance: METFORMIN HYDROCHLORIDE
  15. ADRIBLASTINE [Suspect]
     Active Substance: DOXORUBICIN
     Indication: NON-HODGKIN^S LYMPHOMA STAGE IV
     Dosage: UNK
     Route: 042
     Dates: start: 200807, end: 200811
  16. ETOPOSIDE MYLAN [Suspect]
     Active Substance: ETOPOSIDE
     Indication: NON-HODGKIN^S LYMPHOMA STAGE IV
     Dosage: 404 MG ON DAY 2, DAY 3, DAY 4, DAY 5
     Route: 042
     Dates: start: 20090226, end: 20090301
  17. DIFFU K [Concomitant]
     Active Substance: POTASSIUM CHLORIDE
  18. PREDNISONE. [Concomitant]
     Active Substance: PREDNISONE
     Indication: NON-HODGKIN^S LYMPHOMA
  19. ARACYTINE [Suspect]
     Active Substance: CYTARABINE
     Indication: NON-HODGKIN^S LYMPHOMA STAGE IV
     Dosage: 404 MG ON DAY 2, DAY 3, DAY 4, DAY 5
     Route: 042
     Dates: start: 20090226, end: 20090301
  20. ONCOVIN [Suspect]
     Active Substance: VINCRISTINE SULFATE
     Indication: NON-HODGKIN^S LYMPHOMA STAGE IV
     Dosage: 1 MG, UNK
     Route: 042
     Dates: start: 200807, end: 200811
  21. NEURONTIN [Concomitant]
     Active Substance: GABAPENTIN
  22. ENDOXAN [Suspect]
     Active Substance: CYCLOPHOSPHAMIDE
     Dosage: 6318 MG, UNK
     Route: 042
     Dates: start: 200901, end: 200901
  23. BICNU [Suspect]
     Active Substance: CARMUSTINE
     Indication: NON-HODGKIN^S LYMPHOMA STAGE IV
     Dosage: 610 MG ON DAY 1
     Route: 042
     Dates: start: 20090225

REACTIONS (2)
  - Second primary malignancy [Fatal]
  - Myelodysplastic syndrome [Fatal]

NARRATIVE: CASE EVENT DATE: 201210
